FAERS Safety Report 17576804 (Version 1)
Quarter: 2020Q1

REPORT INFORMATION
  Report Type: Spontaneous
  Country: US (occurrence: US)
  Receive Date: 20200324
  Receipt Date: 20200324
  Transmission Date: 20200409
  Serious: No
  Sender: FDA-Public Use
  Company Number: US-ACORDA-ACO_164127_2020

PATIENT
  Age: 70 Year
  Sex: Female
  Weight: 79.37 kg

DRUGS (2)
  1. OTHER THERAPEUTIC PRODUCTS [Concomitant]
     Active Substance: UNSPECIFIED INGREDIENT
     Indication: PARKINSON^S DISEASE
     Dosage: UNK
     Route: 065
  2. INBRIJA [Suspect]
     Active Substance: LEVODOPA
     Indication: PARKINSON^S DISEASE
     Dosage: 2 CAPSULES, PRN
     Dates: start: 20200303

REACTIONS (5)
  - Device issue [Recovered/Resolved]
  - Product taste abnormal [Recovered/Resolved]
  - Product residue present [Recovered/Resolved]
  - Wrong technique in device usage process [Recovered/Resolved]
  - Retching [Recovered/Resolved]

NARRATIVE: CASE EVENT DATE: 20200303
